FAERS Safety Report 13350526 (Version 1)
Quarter: 2017Q1

REPORT INFORMATION
  Report Type: Other
  Country: GB (occurrence: GB)
  Receive Date: 20170320
  Receipt Date: 20170320
  Transmission Date: 20170429
  Serious: Yes (Hospitalization)
  Sender: FDA-Public Use
  Company Number: GB-GLENMARK PHARMACEUTICALS-2017GMK026756

PATIENT

DRUGS (1)
  1. GABAPENTIN. [Suspect]
     Active Substance: GABAPENTIN
     Indication: NERVE COMPRESSION
     Dosage: 300 MG, OD
     Route: 048
     Dates: start: 20170113, end: 20170213

REACTIONS (5)
  - Product use issue [Unknown]
  - Thrombocytopenia [Not Recovered/Not Resolved]
  - Thrombosis [Not Recovered/Not Resolved]
  - Gingival bleeding [Not Recovered/Not Resolved]
  - Rash [Not Recovered/Not Resolved]
